FAERS Safety Report 21943475 (Version 1)
Quarter: 2023Q1

REPORT INFORMATION
  Report Type: Report from Study
  Country: BE (occurrence: BE)
  Receive Date: 20230202
  Receipt Date: 20230202
  Transmission Date: 20230418
  Serious: Yes (Hospitalization)
  Sender: FDA-Public Use
  Company Number: BE-ABBVIE-4291148

PATIENT
  Sex: Male
  Weight: 67 kg

DRUGS (2)
  1. CARBIDOPA\LEVODOPA [Suspect]
     Active Substance: CARBIDOPA\LEVODOPA
     Indication: Parkinson^s disease
     Dosage: MD 7.0 ML; CD 4.0 ML/HR DURING 24 HOURS; ED 2.5 ML, CND: 1.0 ML/HR
     Route: 050
     Dates: start: 20220104
  2. CARBIDOPA\LEVODOPA [Suspect]
     Active Substance: CARBIDOPA\LEVODOPA
     Dosage: MD 7.0 ML; CD 4.0 ML/HR DURING 24 HOURS; ED 2.5 ML, CND: 1.0 ML/HR
     Route: 050
     Dates: start: 20221017

REACTIONS (2)
  - Dyspnoea [Unknown]
  - Stent placement [Unknown]

NARRATIVE: CASE EVENT DATE: 20230101
